FAERS Safety Report 9659103 (Version 1)
Quarter: 2013Q4

REPORT INFORMATION
  Report Type: Spontaneous
  Country: US (occurrence: US)
  Receive Date: 20131031
  Receipt Date: 20131031
  Transmission Date: 20140711
  Serious: No
  Sender: FDA-Public Use
  Company Number: US-BIOGENIDEC-2013BI102719

PATIENT
  Age: 62 Year
  Sex: Female

DRUGS (1)
  1. AVONEX [Suspect]
     Indication: MULTIPLE SCLEROSIS
     Route: 030
     Dates: start: 20030815

REACTIONS (5)
  - Injection site haemorrhage [Unknown]
  - Viral labyrinthitis [Unknown]
  - Nervousness [Unknown]
  - Injection site pain [Unknown]
  - Pain in extremity [Unknown]
